FAERS Safety Report 25716441 (Version 1)
Quarter: 2025Q3

REPORT INFORMATION
  Report Type: Other
  Country: EU (occurrence: EU)
  Receive Date: 20250822
  Receipt Date: 20250822
  Transmission Date: 20251020
  Serious: Yes (Life-Threatening)
  Sender: Atnahs Healthcare
  Company Number: None

PATIENT

DRUGS (1)
  1. NAPROXEN [Suspect]
     Active Substance: NAPROXEN
     Indication: Pain
     Dosage: 550 MG, DAILY (TABLET)
     Route: 048
     Dates: start: 20250502, end: 20250502

REACTIONS (2)
  - Tongue oedema [Unknown]
  - Erythema [Unknown]

NARRATIVE: CASE EVENT DATE: 20250502
